FAERS Safety Report 13680134 (Version 1)
Quarter: 2017Q2

REPORT INFORMATION
  Report Type: Spontaneous
  Country: US (occurrence: US)
  Receive Date: 20170622
  Receipt Date: 20170622
  Transmission Date: 20170830
  Serious: Yes (Other)
  Sender: FDA-Public Use
  Company Number: US-BAUSCH-BL-2017-019601

PATIENT
  Age: 56 Year
  Sex: Male

DRUGS (1)
  1. GENTAMICIN. [Suspect]
     Active Substance: GENTAMICIN
     Indication: MENIERE^S DISEASE
     Dosage: INTRA-TYMPANIC
     Route: 050

REACTIONS (2)
  - Diplopia [Unknown]
  - Strabismus [Unknown]
